FAERS Safety Report 5449017-9 (Version None)
Quarter: 2007Q3

REPORT INFORMATION
  Report Type: 
  Country: None (occurrence: None)
  Receive Date: 20070911
  Receipt Date: 20070830
  Transmission Date: 20080115
  Serious: Yes (Hospitalization)
  Sender: FDA-Public Use
  Company Number: CH-ROCHE-515066

PATIENT
  Age: 35 Year
  Sex: Female
  Weight: 55 kg

DRUGS (8)
  1. CAPECITABINE [Suspect]
     Indication: BREAST CANCER
     Route: 048
     Dates: start: 20070411, end: 20070717
  2. SATRAPLATIN [Suspect]
     Indication: BREAST CANCER
     Route: 048
     Dates: start: 20070404, end: 20070701
  3. COUMADIN [Concomitant]
     Indication: DRUG USE FOR UNKNOWN INDICATION
     Route: 048
     Dates: start: 20050701
  4. SODIUM PICOSULFATE [Concomitant]
     Indication: DRUG USE FOR UNKNOWN INDICATION
     Dosage: FRECUENCY REPORTED AS PRN.
     Route: 048
     Dates: start: 20070404
  5. MORPHINE [Concomitant]
     Indication: DRUG USE FOR UNKNOWN INDICATION
     Dosage: FREQUENCY REPORTED AS PRN. DRUG REPORTED AS MORPHINE DROPS.
     Route: 048
     Dates: start: 20070411
  6. POLYETHYLENE GLYCOL [Concomitant]
     Indication: DRUG USE FOR UNKNOWN INDICATION
     Dosage: DRUG REPORTED AS POLYETHYLENE GLYCOL WITH ELECTROLYTES
     Route: 048
     Dates: start: 20070418
  7. MORPHINE [Concomitant]
     Route: 048
     Dates: start: 20070417
  8. MULTIVITAMIN NOS [Concomitant]
     Indication: DRUG USE FOR UNKNOWN INDICATION
     Dosage: FREQUENCY REPORTED AS QD.
     Route: 048
     Dates: start: 20070530

REACTIONS (1)
  - LUNG DISORDER [None]
